FAERS Safety Report 4520935-9 (Version None)
Quarter: 2004Q4

REPORT INFORMATION
  Report Type: 
  Country: None (occurrence: None)
  Receive Date: 20041206
  Receipt Date: 20040913
  Transmission Date: 20050328
  Serious: Yes (Death)
  Sender: FDA-Public Use
  Company Number: M2004-1803

PATIENT
  Age: 42 Year
  Sex: Male

DRUGS (6)
  1. CARBIDOPA AND LEVODOPA [Suspect]
     Indication: PARKINSONIAN GAIT
  2. LORAZEPAM [Suspect]
     Dosage: 1 MG
  3. DENZAPINE (CLOZAPINE) [Suspect]
     Indication: SCHIZOPHRENIA
     Dosage: 400 MG
  4. MOVICOL (POTASSIUM CHLORIDE/SODIUM BICARBONATE/SODIUM CHLORIDE) [Suspect]
     Indication: CONSTIPATION
     Dosage: 2 SACHETS
  5. ZOPICLONE (ZOPICLONE) [Suspect]
     Dosage: 3.75 MG
  6. CITALOPRAM [Suspect]
     Dosage: 40 MG

REACTIONS (2)
  - CARDIAC DISORDER [None]
  - MULTIPLE DRUG OVERDOSE [None]
